FAERS Safety Report 7947051-8 (Version None)
Quarter: 2011Q4

REPORT INFORMATION
  Report Type: 
  Country: None (occurrence: None)
  Receive Date: 20111129
  Receipt Date: 20110802
  Transmission Date: 20120403
  Serious: No
  Sender: FDA-Public Use
  Company Number: US-ASTRAZENECA-2011SE46497

PATIENT
  Age: 37 Year
  Sex: Female

DRUGS (30)
  1. VITAMIN D [Concomitant]
  2. HYDROCHLOROTHIAZIDE [Concomitant]
  3. SIMVASTATIN [Concomitant]
  4. ROBAXIN [Concomitant]
  5. FOLIC ACID [Concomitant]
  6. XANAX [Concomitant]
  7. PREMPRO [Concomitant]
  8. METFORMIN HCL [Concomitant]
  9. PRASTERONE [Concomitant]
  10. NIACIN [Concomitant]
  11. CALCIUM [Concomitant]
  12. COLCRYS [Concomitant]
  13. PHENERGAN [Concomitant]
     Indication: NAUSEA
  14. DIFLUCAN [Concomitant]
     Indication: FUNGAL INFECTION
  15. VIMOVO [Suspect]
     Route: 048
  16. BACTRIM DS [Concomitant]
  17. BENADRYL [Concomitant]
  18. PHENTERMINE [Concomitant]
  19. GLUCOSAMINE/CHONDOIDTINE [Concomitant]
  20. TOPROL-XL [Suspect]
     Route: 048
  21. CYMBALTA [Concomitant]
  22. NIFEDIPINE [Concomitant]
  23. DAPSONE [Concomitant]
  24. CYTOXAN [Concomitant]
  25. LORTAB [Concomitant]
     Indication: PAIN
  26. OMEPRAZOLE [Suspect]
     Route: 048
  27. ARAVA [Concomitant]
  28. RESTORIL [Concomitant]
  29. MELATONIN [Concomitant]
  30. TRICOR [Concomitant]

REACTIONS (7)
  - VISUAL FIELD DEFECT [None]
  - ARTHRITIS [None]
  - BEHCET'S SYNDROME [None]
  - RHEUMATOID ARTHRITIS [None]
  - TOTAL LUNG CAPACITY DECREASED [None]
  - ABDOMINAL DISCOMFORT [None]
  - FIBROMYALGIA [None]
